FAERS Safety Report 13699952 (Version 1)
Quarter: 2017Q2

REPORT INFORMATION
  Report Type: Report from Study
  Country: BR (occurrence: BR)
  Receive Date: 20170629
  Receipt Date: 20170629
  Transmission Date: 20170830
  Serious: Yes (Hospitalization)
  Sender: FDA-Public Use
  Company Number: BR-UCBSA-2017024825

PATIENT
  Sex: Female
  Weight: 83 kg

DRUGS (2)
  1. CERTOLIZUMAB PEGOL [Suspect]
     Active Substance: CERTOLIZUMAB PEGOL
     Indication: RHEUMATOID ARTHRITIS
     Dosage: 200 MG, EV 15 DAYS (1 AMPOULE EVERY 15 DAYS)
  2. CERTOLIZUMAB PEGOL [Suspect]
     Active Substance: CERTOLIZUMAB PEGOL
     Dosage: 200 MG, EV 4 WEEKS (1 AMPOULE EVERY 28 DAYS)
     Dates: end: 201703

REACTIONS (5)
  - Influenza [Unknown]
  - Off label use [Unknown]
  - Drug effect decreased [Unknown]
  - Autoantibody positive [Unknown]
  - Back pain [Unknown]
